FAERS Safety Report 10258142 (Version 1)
Quarter: 2014Q2

REPORT INFORMATION
  Report Type: Report from Study
  Country: US (occurrence: US)
  Receive Date: 20140625
  Receipt Date: 20140625
  Transmission Date: 20141212
  Serious: Yes (Other)
  Sender: FDA-Public Use
  Company Number: US-PURDUE-USA-2014-0115080

PATIENT
  Sex: Female

DRUGS (1)
  1. OXY CR TAB [Suspect]
     Indication: BACK PAIN
     Dosage: 40 MG, Q8H
     Dates: start: 201306

REACTIONS (3)
  - Intervertebral disc annular tear [Unknown]
  - Wrong technique in drug usage process [Unknown]
  - Pain [Unknown]
